FAERS Safety Report 7180741-6 (Version None)
Quarter: 2010Q4

REPORT INFORMATION
  Report Type: 
  Country: None (occurrence: None)
  Receive Date: 20101221
  Receipt Date: 20101216
  Transmission Date: 20110411
  Serious: Yes (Life-Threatening)
  Sender: FDA-Public Use
  Company Number: AU-ABBOTT-10P-008-0646214-00

PATIENT
  Sex: Female
  Weight: 71 kg

DRUGS (3)
  1. REDUCTIL [Suspect]
     Indication: PRODUCT USED FOR UNKNOWN INDICATION
     Route: 048
     Dates: start: 20091020, end: 20091204
  2. HRT [Concomitant]
     Indication: PRODUCT USED FOR UNKNOWN INDICATION
  3. MERSYNDOL [Concomitant]
     Indication: PRODUCT USED FOR UNKNOWN INDICATION

REACTIONS (2)
  - HEADACHE [None]
  - LOSS OF CONSCIOUSNESS [None]
